FAERS Safety Report 4532475-1 (Version None)
Quarter: 2004Q4

REPORT INFORMATION
  Report Type: 
  Country: None (occurrence: None)
  Receive Date: 20041206
  Receipt Date: 20040921
  Transmission Date: 20050328
  Serious: No
  Sender: FDA-Public Use
  Company Number: USA040978921

PATIENT
  Sex: Male

DRUGS (6)
  1. CYMBALTA [Suspect]
     Indication: DEPRESSION
     Dosage: 30 MG IN THE MORNING
     Dates: start: 20040921
  2. PRINIVIL [Concomitant]
  3. ATIVAN [Concomitant]
  4. BUSPAR [Concomitant]
  5. KLONOPIN [Concomitant]
  6. NEURONTIN (GABAPENTIN PFIZER) [Concomitant]

REACTIONS (2)
  - TREMOR [None]
  - VOMITING [None]
